FAERS Safety Report 10802746 (Version 2)
Quarter: 2015Q1

REPORT INFORMATION
  Report Type: Spontaneous
  Country: US (occurrence: US)
  Receive Date: 20150217
  Receipt Date: 20150223
  Transmission Date: 20150721
  Serious: No
  Sender: FDA-Public Use
  Company Number: US-PFIZER INC-2015060741

PATIENT
  Sex: Male
  Weight: 45.35 kg

DRUGS (1)
  1. VIAGRA [Suspect]
     Active Substance: SILDENAFIL CITRATE
     Indication: ERECTILE DYSFUNCTION
     Dosage: 3 MG, 1X/DAY
     Route: 048

REACTIONS (2)
  - Nasal disorder [Unknown]
  - Drug ineffective [Unknown]
